FAERS Safety Report 18562066 (Version 1)
Quarter: 2020Q4

REPORT INFORMATION
  Report Type: Spontaneous
  Country: HU (occurrence: HU)
  Receive Date: 20201201
  Receipt Date: 20201201
  Transmission Date: 20210114
  Serious: Yes (Hospitalization, Other)
  Sender: FDA-Public Use
  Company Number: HU-ROCHE-2720094

PATIENT
  Age: 15 Year
  Sex: Male

DRUGS (4)
  1. RITUXIMAB. [Suspect]
     Active Substance: RITUXIMAB
     Indication: IMMUNE THROMBOCYTOPENIA
     Route: 065
     Dates: start: 2018
  2. ROMIPLOSTIM [Concomitant]
     Active Substance: ROMIPLOSTIM
     Indication: IMMUNE THROMBOCYTOPENIA
     Dosage: 10 MICG / KG
     Route: 065
     Dates: start: 2018
  3. RITUXIMAB. [Suspect]
     Active Substance: RITUXIMAB
     Route: 065
     Dates: start: 201805, end: 201806
  4. VINCRISTINE [Concomitant]
     Active Substance: VINCRISTINE
     Indication: IMMUNE THROMBOCYTOPENIA
     Route: 065
     Dates: start: 2018

REACTIONS (9)
  - Intentional product use issue [Unknown]
  - Haematuria [Unknown]
  - Spinal compression fracture [Unknown]
  - Therapy non-responder [Unknown]
  - Spinal pain [Unknown]
  - Aggression [Unknown]
  - Platelet count decreased [Recovered/Resolved]
  - Osteopenia [Unknown]
  - Off label use [Unknown]

NARRATIVE: CASE EVENT DATE: 2018
